FAERS Safety Report 14072768 (Version 1)
Quarter: 2017Q4

REPORT INFORMATION
  Report Type: Other
  Country: CA (occurrence: CA)
  Receive Date: 20171011
  Receipt Date: 20171011
  Transmission Date: 20180321
  Serious: Yes (Other)
  Sender: FDA-Public Use
  Company Number: CA-APOTEX-2017AP019375

PATIENT
  Age: 60 Year
  Sex: Female

DRUGS (1)
  1. APO-SALVENT [Suspect]
     Active Substance: ALBUTEROL
     Indication: PRODUCT USED FOR UNKNOWN INDICATION
     Dosage: UNK
     Route: 065

REACTIONS (4)
  - Thyroid cancer [Unknown]
  - Thyroid cyst [Unknown]
  - Lung neoplasm malignant [Unknown]
  - Lymphoma [Unknown]
